FAERS Safety Report 19340455 (Version 1)
Quarter: 2021Q2

REPORT INFORMATION
  Report Type: Report from Study
  Country: None (occurrence: CA)
  Receive Date: 20210530
  Receipt Date: 20210530
  Transmission Date: 20210717
  Serious: Yes (Other)
  Sender: FDA-Public Use
  Company Number: CA-ABBVIE-21K-028-3925425-00

PATIENT
  Age: 46 Year
  Sex: Female

DRUGS (1)
  1. HUMIRA [Suspect]
     Active Substance: ADALIMUMAB
     Indication: CROHN^S DISEASE
     Route: 058
     Dates: start: 20150330

REACTIONS (8)
  - Dyspepsia [Unknown]
  - Arthralgia [Not Recovered/Not Resolved]
  - Glaucoma [Unknown]
  - Abdominal pain [Recovered/Resolved]
  - Anal fistula [Recovered/Resolved]
  - Impaired work ability [Unknown]
  - General physical health deterioration [Recovered/Resolved]
  - Impaired quality of life [Unknown]

NARRATIVE: CASE EVENT DATE: 20210524
